FAERS Safety Report 6539334-3 (Version None)
Quarter: 2010Q1

REPORT INFORMATION
  Report Type: 
  Country: None (occurrence: None)
  Receive Date: 20100115
  Receipt Date: 20100112
  Transmission Date: 20100710
  Serious: Yes (Life-Threatening, Hospitalization)
  Sender: FDA-Public Use
  Company Number: PHHO2009IN13381

PATIENT
  Sex: Male
  Weight: 71 kg

DRUGS (3)
  1. ALISKIREN ALI+TAB+CF [Suspect]
     Indication: CARDIAC FAILURE ACUTE
     Dosage: BLINDED
     Route: 048
     Dates: start: 20090924, end: 20091029
  2. CARVEDILOL [Concomitant]
     Indication: CARDIAC FAILURE ACUTE
  3. LANOXIN [Concomitant]
     Indication: CARDIAC FAILURE ACUTE

REACTIONS (6)
  - CARDIAC FAILURE ACUTE [None]
  - DISEASE PROGRESSION [None]
  - DYSPNOEA [None]
  - FATIGUE [None]
  - HYPERKALAEMIA [None]
  - OEDEMA PERIPHERAL [None]
